FAERS Safety Report 17484736 (Version 1)
Quarter: 2020Q1

REPORT INFORMATION
  Report Type: Spontaneous
  Country: KR (occurrence: KR)
  Receive Date: 20200302
  Receipt Date: 20200302
  Transmission Date: 20200409
  Serious: Yes (Other)
  Sender: FDA-Public Use
  Company Number: KR-PFIZER INC-2020082802

PATIENT
  Age: 5 Decade
  Sex: Female

DRUGS (4)
  1. FURIX [FUROSEMIDE] [Suspect]
     Active Substance: FUROSEMIDE
     Indication: CARDIOVASCULAR DISORDER
     Dosage: 0.25 DF, UNK
     Route: 048
     Dates: start: 2018, end: 2018
  2. ACERTIL [PERINDOPRIL ERBUMINE] [Suspect]
     Active Substance: PERINDOPRIL ERBUMINE
     Indication: CARDIOVASCULAR DISORDER
     Dosage: 0.5 DF, UNK
     Route: 048
     Dates: start: 2018, end: 2018
  3. NORVASC [Suspect]
     Active Substance: AMLODIPINE BESYLATE
     Dosage: 0.5 DF, UNK
     Route: 048
     Dates: start: 2018, end: 2018
  4. NORVASC [Suspect]
     Active Substance: AMLODIPINE BESYLATE
     Indication: CARDIOVASCULAR DISORDER
     Dosage: 5 MG, UNK
     Route: 048
     Dates: start: 2018, end: 2018

REACTIONS (22)
  - Hormone level abnormal [Recovering/Resolving]
  - Alopecia [Recovered/Resolved]
  - Vertigo [Recovered/Resolved]
  - Constipation [Recovered/Resolved]
  - Myalgia [Recovered/Resolved]
  - Uterine disorder [Recovered/Resolved]
  - Enteritis [Recovered/Resolved]
  - Asthenia [Recovered/Resolved]
  - Blood pressure decreased [Recovered/Resolved]
  - Dizziness [Recovered/Resolved]
  - Dyspepsia [Recovered/Resolved]
  - Skin wrinkling [Unknown]
  - Pyelonephritis [Recovered/Resolved]
  - Abdominal distension [Recovered/Resolved]
  - Bradyphrenia [Recovered/Resolved]
  - Weight increased [Not Recovered/Not Resolved]
  - Pain [Recovered/Resolved]
  - Menstruation irregular [Not Recovered/Not Resolved]
  - Vision blurred [Recovered/Resolved]
  - General physical health deterioration [Recovered/Resolved]
  - Amenorrhoea [Not Recovered/Not Resolved]
  - Hyperhidrosis [Recovered/Resolved]

NARRATIVE: CASE EVENT DATE: 2018
